FAERS Safety Report 7770031-2 (Version None)
Quarter: 2011Q3

REPORT INFORMATION
  Report Type: 
  Country: None (occurrence: None)
  Receive Date: 20110922
  Receipt Date: 20110113
  Transmission Date: 20111222
  Serious: Yes (Hospitalization, Other)
  Sender: FDA-Public Use
  Company Number: US-ASTRAZENECA-2007UW12966

PATIENT
  Sex: Male
  Weight: 107.5 kg

DRUGS (15)
  1. SEROQUEL [Suspect]
     Route: 048
     Dates: start: 20040501
  2. BLEPHAMIDE [Concomitant]
     Route: 047
     Dates: start: 19990301
  3. DEPAKOTE [Concomitant]
     Dosage: 250,500 MG DISPENSED
     Dates: start: 19990802
  4. CELEXA [Concomitant]
     Dosage: 20 MG,40 MG DISPENSED
     Dates: start: 19991003
  5. LORAZEPAM [Concomitant]
     Dosage: 0.5 MG,1MG DISPENSED
     Dates: start: 19991005
  6. SERZONE [Concomitant]
     Dates: start: 19990707
  7. RISPERDAL [Concomitant]
     Dates: start: 19990830
  8. TRIAVIL [Concomitant]
     Dosage: 4-25
     Dates: start: 20000817
  9. NEURONTIN [Concomitant]
     Dates: start: 19990707
  10. CLONAZEPAM [Concomitant]
     Dates: start: 19990707
  11. PAXIL [Concomitant]
     Dates: start: 20040502
  12. SEROQUEL [Suspect]
     Dosage: 100 MG, 200 MG DISPENSED
     Route: 048
     Dates: start: 19991026
  13. ZYPREXA [Concomitant]
     Dosage: 5 MG,10 MG DISPENSED
     Dates: start: 19990802
  14. ESKALITH CR [Concomitant]
     Dates: start: 19990802
  15. LOTREL [Concomitant]
     Dosage: 600 PO BID
     Route: 048
     Dates: start: 20040502

REACTIONS (3)
  - TYPE 2 DIABETES MELLITUS [None]
  - HYPOGLYCAEMIA [None]
  - DIABETIC KETOACIDOSIS [None]
